FAERS Safety Report 9551407 (Version 1)
Quarter: 2013Q3

REPORT INFORMATION
  Report Type: Spontaneous
  Country: US (occurrence: None)
  Receive Date: 20130724
  Receipt Date: 20130724
  Transmission Date: 20140515
  Serious: Yes (Other)
  Sender: FDA-Public Use
  Company Number: PHEH2013US007944

PATIENT
  Age: 27 Year
  Sex: Female

DRUGS (7)
  1. AFINITOR [Suspect]
     Indication: TUBEROUS SCLEROSIS
     Route: 048
     Dates: start: 201302
  2. POTASSIUM [Concomitant]
  3. ALOPURINOL (ALLOPURINOL) [Concomitant]
  4. LAMICTAL (LAMOTRIGINE) [Concomitant]
  5. TRILEPTAL (OXCARBAZEINE) [Concomitant]
  6. MULTIVITAMINS (ASCORBIC ACID, ERGOCALCIFEROL, FOLIC ACID, NICOTINAMIDE, PANTHENOL, RETINOL, RIBOFLAVIN, THIAMINE HYDROCHLORIDE) [Concomitant]
  7. MAGIC MOUTHWASH (DIPENHYDRAMINE HYDROCHLORIDE, HYDROCORTISONE, NYSTATIN) [Concomitant]

REACTIONS (5)
  - Respiratory tract infection [None]
  - Vaginal ulceration [None]
  - Stomatitis [None]
  - Dysphagia [None]
  - Cough [None]
